FAERS Safety Report 4312145-5 (Version None)
Quarter: 2004Q1

REPORT INFORMATION
  Report Type: 
  Country: None (occurrence: None)
  Receive Date: 20040303
  Receipt Date: 20040219
  Transmission Date: 20041129
  Serious: Yes (Other)
  Sender: FDA-Public Use
  Company Number: 2004010982

PATIENT
  Age: 54 Year
  Sex: Male
  Weight: 67.586 kg

DRUGS (3)
  1. BENADRYL [Suspect]
     Indication: URTICARIA
     Dosage: 1 SOFTGEL ONCE, ORAL
     Route: 048
     Dates: start: 20040212, end: 20040212
  2. GUAIFENESIN (GUAIFENESIN) [Suspect]
     Indication: NASOPHARYNGITIS
     Dosage: ORAL
     Route: 048
     Dates: start: 20040212
  3. CALAMINE LOTION (GLYCEROL, SODIUM CITRATE, BENTONITE, ZINC OXIDE, CALA [Suspect]
     Indication: URTICARIA
     Dosage: ONCE, TOPICAL
     Route: 061
     Dates: start: 20040212, end: 20040212

REACTIONS (5)
  - CONVULSION [None]
  - DRY SKIN [None]
  - LOSS OF CONSCIOUSNESS [None]
  - PRURITUS [None]
  - RASH MACULAR [None]
